FAERS Safety Report 16214264 (Version 2)
Quarter: 2019Q2

REPORT INFORMATION
  Report Type: Spontaneous
  Country: JP (occurrence: JP)
  Receive Date: 20190418
  Receipt Date: 20190510
  Transmission Date: 20190711
  Serious: Yes (Other)
  Sender: FDA-Public Use
  Company Number: JP-MALLINCKRODT-T201902988

PATIENT
  Age: 51 Year
  Sex: Male

DRUGS (2)
  1. AMITIZA [Suspect]
     Active Substance: LUBIPROSTONE
     Indication: PRODUCT USED FOR UNKNOWN INDICATION
     Dosage: UNK
     Route: 048
     Dates: start: 20190312, end: 20190326
  2. AMITIZA [Suspect]
     Active Substance: LUBIPROSTONE
     Dosage: UNK
     Route: 048
     Dates: start: 20190330, end: 20190403

REACTIONS (1)
  - Hepatic function abnormal [Unknown]
